FAERS Safety Report 7312774-0 (Version None)
Quarter: 2011Q1

REPORT INFORMATION
  Report Type: 
  Country: None (occurrence: None)
  Receive Date: 20110224
  Receipt Date: 20110217
  Transmission Date: 20110831
  Serious: Yes (Hospitalization)
  Sender: FDA-Public Use
  Company Number: US-US-EMD SERONO, INC.-7043014

PATIENT
  Sex: Female
  Weight: 57 kg

DRUGS (3)
  1. REBIF [Suspect]
     Dates: start: 20101215
  2. IBUPROFEN [Concomitant]
  3. REBIF [Suspect]
     Indication: MULTIPLE SCLEROSIS
     Route: 058
     Dates: start: 20071201, end: 20101201

REACTIONS (8)
  - FALL [None]
  - BALANCE DISORDER [None]
  - MUSCULAR WEAKNESS [None]
  - INFLUENZA [None]
  - PNEUMONIA [None]
  - ASTHENIA [None]
  - NECK PAIN [None]
  - HEADACHE [None]
